FAERS Safety Report 20258026 (Version 1)
Quarter: 2021Q4

REPORT INFORMATION
  Report Type: Spontaneous
  Country: US (occurrence: None)
  Receive Date: 20211229
  Receipt Date: 20211229
  Transmission Date: 20220303
  Serious: No
  Sender: FDA-Public Use
  Company Number: None

PATIENT
  Age: 59 Year
  Sex: Female
  Weight: 85.95 kg

DRUGS (21)
  1. FLUTICASONE PROPIONATE [Suspect]
     Active Substance: FLUTICASONE PROPIONATE
     Indication: Seasonal allergy
     Dosage: FREQUENCY : TWICE A DAY;?
     Route: 055
  2. IMITREX [Concomitant]
     Active Substance: SUMATRIPTAN SUCCINATE
  3. SYMBICORT [Concomitant]
     Active Substance: BUDESONIDE\FORMOTEROL FUMARATE DIHYDRATE
  4. SINGULAIR [Concomitant]
     Active Substance: MONTELUKAST SODIUM
  5. ALBUTEROL [Concomitant]
     Active Substance: ALBUTEROL
  6. AZELASTINE HYDROCHLORIDE [Concomitant]
     Active Substance: AZELASTINE HYDROCHLORIDE
  7. Motrin 800 [Concomitant]
  8. LORATADINE [Concomitant]
     Active Substance: LORATADINE
  9. CEPHALEXIN [Concomitant]
     Active Substance: CEPHALEXIN
  10. HYDROXYZINE [Concomitant]
     Active Substance: HYDROXYZINE HYDROCHLORIDE
  11. GABAPENTIN [Suspect]
     Active Substance: GABAPENTIN
  12. Vitafusioin multivitamins [Concomitant]
  13. HERBALS\TURMERIC [Concomitant]
     Active Substance: HERBALS\TURMERIC
  14. CALCIUM [Concomitant]
     Active Substance: CALCIUM
  15. GLUCOSAMINE [Concomitant]
     Active Substance: GLUCOSAMINE
  16. APPLE CIDER VINEGAR [Concomitant]
     Active Substance: APPLE CIDER VINEGAR
  17. PROBIOTICS NOS [Concomitant]
     Active Substance: PROBIOTICS NOS
  18. BIOTIN [Concomitant]
     Active Substance: BIOTIN
  19. BENADRYL [Concomitant]
     Active Substance: DIPHENHYDRAMINE HYDROCHLORIDE
  20. ZYRTEC [Concomitant]
     Active Substance: CETIRIZINE HYDROCHLORIDE
  21. XYZAL [Concomitant]
     Active Substance: LEVOCETIRIZINE DIHYDROCHLORIDE

REACTIONS (7)
  - Migraine [None]
  - Nausea [None]
  - Sinusitis [None]
  - Anosmia [None]
  - Ageusia [None]
  - Product substitution issue [None]
  - Discoloured vomit [None]

NARRATIVE: CASE EVENT DATE: 20211222
